FAERS Safety Report 14060521 (Version 2)
Quarter: 2017Q4

REPORT INFORMATION
  Report Type: Spontaneous
  Country: PL (occurrence: PL)
  Receive Date: 20171006
  Receipt Date: 20171011
  Transmission Date: 20180321
  Serious: Yes (Hospitalization, Other)
  Sender: FDA-Public Use
  Company Number: PL-009507513-1710POL001674

PATIENT
  Age: 31 Year
  Sex: Female

DRUGS (2)
  1. PEMBROLIZUMAB. [Suspect]
     Active Substance: PEMBROLIZUMAB
     Indication: MALIGNANT MELANOMA STAGE IV
     Dosage: UNK
     Dates: start: 20160923
  2. DEXAMETHASONE. [Concomitant]
     Active Substance: DEXAMETHASONE
     Dosage: DOSE OF 2*2 MG WITH A PLANNED DOSE REDUCTION

REACTIONS (11)
  - General physical health deterioration [Unknown]
  - Hypocalcaemia [Unknown]
  - Toxicity to various agents [Unknown]
  - Pain in extremity [Not Recovered/Not Resolved]
  - Ascites [Not Recovered/Not Resolved]
  - Hyperkalaemia [Unknown]
  - Hepatic enzyme increased [Unknown]
  - Hyponatraemia [Unknown]
  - Blood lactate dehydrogenase increased [Unknown]
  - Dyspnoea [Unknown]
  - Pyrexia [Unknown]

NARRATIVE: CASE EVENT DATE: 2016
